FAERS Safety Report 6853168-1 (Version None)
Quarter: 2010Q3

REPORT INFORMATION
  Report Type: 
  Country: None (occurrence: None)
  Receive Date: 20100717
  Receipt Date: 20071202
  Transmission Date: 20110219
  Serious: No
  Sender: FDA-Public Use
  Company Number: US-PFIZER INC-2007103498

PATIENT
  Age: 60 Year
  Sex: Male
  Weight: 66.8 kg

DRUGS (4)
  1. CHANTIX [Suspect]
     Indication: SMOKING CESSATION THERAPY
     Dates: start: 20071101
  2. ADVIL LIQUI-GELS [Concomitant]
     Indication: BACK PAIN
  3. VITAMINS [Concomitant]
  4. TRACE ELEMENTS [Concomitant]

REACTIONS (2)
  - CONTUSION [None]
  - SKIN DISCOLOURATION [None]
